FAERS Safety Report 7607699-7 (Version None)
Quarter: 2011Q3

REPORT INFORMATION
  Report Type: 
  Country: None (occurrence: None)
  Receive Date: 20110713
  Receipt Date: 20110519
  Transmission Date: 20111222
  Serious: Yes (Other)
  Sender: FDA-Public Use
  Company Number: PHHY2011MX44582

PATIENT
  Sex: Female

DRUGS (2)
  1. DIOVAN HCT [Suspect]
     Indication: HYPERTENSION
     Dosage: 1 DF, 160 MG VALS AND 12.5 MG HYDR
     Dates: start: 20070113
  2. FRISIUM [Concomitant]

REACTIONS (2)
  - ARTHRALGIA [None]
  - FALL [None]
